FAERS Safety Report 7334134-9 (Version None)
Quarter: 2011Q1

REPORT INFORMATION
  Report Type: 
  Country: None (occurrence: None)
  Receive Date: 20110307
  Receipt Date: 20110221
  Transmission Date: 20110831
  Serious: Yes (Death, Hospitalization, Other)
  Sender: FDA-Public Use
  Company Number: US-CELGENEUS-163-21880-11012626

PATIENT
  Sex: Female

DRUGS (11)
  1. REVLIMID [Suspect]
     Indication: CYTOGENETIC ANALYSIS ABNORMAL
  2. SENOKOT [Concomitant]
     Dosage: 17.2 MILLIGRAM
     Route: 048
  3. VIDAZA [Suspect]
     Indication: MYELODYSPLASTIC SYNDROME
     Dosage: 75 MILLIGRAM
     Route: 051
     Dates: start: 20110108, end: 20110112
  4. AUGMENTIN '125' [Concomitant]
     Indication: INFECTION
     Dosage: 875 MILLIGRAM
     Route: 048
  5. ZYRTEC-D 12 HOUR [Concomitant]
     Dosage: 5/120MG
     Route: 048
  6. FAMOTIDINE [Concomitant]
     Indication: PROPHYLAXIS
     Route: 065
     Dates: start: 20110101
  7. SYNTHROID [Concomitant]
     Dosage: 100 MICROGRAM
     Route: 048
  8. DIFLUCAN [Concomitant]
     Dosage: 200 MILLIGRAM
     Route: 048
  9. REVLIMID [Suspect]
     Indication: MYELODYSPLASTIC SYNDROME
     Dosage: 75 MILLIGRAM
     Route: 048
     Dates: start: 20110113, end: 20110122
  10. VIDAZA [Suspect]
     Indication: CYTOGENETIC ANALYSIS ABNORMAL
  11. SIMVASTATIN [Concomitant]
     Dosage: 20 MILLIGRAM
     Route: 048

REACTIONS (7)
  - CARDIAC FAILURE CONGESTIVE [None]
  - OTITIS MEDIA [None]
  - PNEUMONIA [None]
  - MULTI-ORGAN FAILURE [None]
  - SEPSIS [None]
  - THROMBOCYTOPENIA [None]
  - ANAEMIA [None]
